FAERS Safety Report 8398603-5 (Version None)
Quarter: 2012Q2

REPORT INFORMATION
  Report Type: 
  Country: None (occurrence: None)
  Receive Date: 20120531
  Receipt Date: 20120521
  Transmission Date: 20120825
  Serious: Yes (Hospitalization)
  Sender: FDA-Public Use
  Company Number: US-ROCHE-1070772

PATIENT
  Age: 47 Year
  Sex: Female

DRUGS (1)
  1. OSELTAMIVIR [Suspect]
     Indication: INFLUENZA
     Route: 048

REACTIONS (4)
  - VOMITING [None]
  - EAR PAIN [None]
  - NAUSEA [None]
  - OTITIS MEDIA [None]
